FAERS Safety Report 7969832-7 (Version None)
Quarter: 2011Q4

REPORT INFORMATION
  Report Type: 
  Country: None (occurrence: None)
  Receive Date: 20111212
  Receipt Date: 20111205
  Transmission Date: 20120403
  Serious: Yes (Other)
  Sender: FDA-Public Use
  Company Number: BR-PFIZER INC-2011295920

PATIENT
  Age: 58 Year
  Sex: Female
  Weight: 55 kg

DRUGS (9)
  1. DIAZEPAM [Concomitant]
     Indication: MOOD ALTERED
     Dosage: 10 MG, AS NEEDED
     Dates: start: 19810101
  2. VARENICLINE TARTRATE [Suspect]
     Indication: SMOKING CESSATION THERAPY
     Dosage: UNK
     Route: 048
     Dates: start: 20111127, end: 20110101
  3. LOSARTAN [Concomitant]
     Indication: HYPERTENSION
     Dosage: 50 MG, 2X/DAY
  4. VARENICLINE TARTRATE [Suspect]
     Dosage: 0.5 MG, 2X/DAY
     Route: 048
     Dates: start: 20110101, end: 20111203
  5. CLOPIDOGREL [Concomitant]
     Indication: HYPERTENSION
     Dosage: 75 MG, 1X/DAY
  6. SIMVASTATIN [Concomitant]
     Indication: BLOOD CHOLESTEROL INCREASED
     Dosage: 40 MG, 1X/DAY
     Dates: start: 20060101
  7. HYDROCHLOROTHIAZIDE [Concomitant]
     Indication: HYPERTENSION
     Dosage: 25 MG, 1X/DAY
  8. ATENOLOL [Concomitant]
     Indication: CARDIAC DISORDER
     Dosage: 50 MG, 2X/DAY
  9. ASPIRIN [Concomitant]
     Indication: CARDIAC DISORDER
     Dosage: 100 MG, 1X/DAY

REACTIONS (8)
  - GLOSSODYNIA [None]
  - DYSPEPSIA [None]
  - PYREXIA [None]
  - THROAT IRRITATION [None]
  - DYSPHONIA [None]
  - TONGUE DISORDER [None]
  - INGUINAL MASS [None]
  - ABDOMINAL DISCOMFORT [None]
